FAERS Safety Report 6106989-7 (Version None)
Quarter: 2009Q1

REPORT INFORMATION
  Report Type: 
  Country: None (occurrence: None)
  Receive Date: 20090309
  Receipt Date: 20090303
  Transmission Date: 20090719
  Serious: Yes (Hospitalization, Other)
  Sender: FDA-Public Use
  Company Number: US-ELI_LILLY_AND_COMPANY-US200903001268

PATIENT
  Sex: Male
  Weight: 100.77 kg

DRUGS (7)
  1. BYETTA [Suspect]
     Indication: TYPE 2 DIABETES MELLITUS
     Dosage: 5 UG, 2/D
     Route: 058
     Dates: start: 20050601, end: 20050701
  2. BYETTA [Suspect]
     Dosage: 10 UG, 2/D
     Route: 058
     Dates: start: 20050701
  3. GLIMEPIRIDE [Concomitant]
     Indication: TYPE 2 DIABETES MELLITUS
     Dosage: 2 MG, DAILY (1/D)
  4. ATENOLOL [Concomitant]
     Indication: BLOOD PRESSURE
     Dosage: 25 MG, DAILY (1/D)
  5. NYSTATIN [Concomitant]
     Indication: CANDIDIASIS
     Dosage: UNK, AS NEEDED
  6. KETOCONAZOLE [Concomitant]
     Indication: CANDIDIASIS
     Dosage: UNK, AS NEEDED
  7. CETIRIZINE [Concomitant]
     Indication: HYPERSENSITIVITY
     Dosage: 10 MG, DAILY (1/D)

REACTIONS (7)
  - ACTIVATED PARTIAL THROMBOPLASTIN TIME PROLONGED [None]
  - BENIGN PROSTATIC HYPERPLASIA [None]
  - DIALYSIS [None]
  - ENZYME ABNORMALITY [None]
  - INTERVERTEBRAL DISC DEGENERATION [None]
  - RENAL CANCER [None]
  - VASCULAR OPERATION [None]
